FAERS Safety Report 19417957 (Version 1)
Quarter: 2021Q2

REPORT INFORMATION
  Report Type: Spontaneous
  Country: US (occurrence: US)
  Receive Date: 20210615
  Receipt Date: 20210615
  Transmission Date: 20210717
  Serious: No
  Sender: FDA-Public Use
  Company Number: US-PFIZER INC-2021294940

PATIENT
  Age: 34 Year
  Sex: Female

DRUGS (1)
  1. IBRANCE [Suspect]
     Active Substance: PALBOCICLIB
     Indication: BREAST CANCER FEMALE
     Dosage: 125 MG, CYCLIC(125 MG DAILY FOR 21 DAYS ON, 7 DAYS OFF ON A 28 DAY CYCLE)

REACTIONS (4)
  - Headache [Unknown]
  - Diarrhoea [Unknown]
  - Hot flush [Unknown]
  - Alopecia [Unknown]
